FAERS Safety Report 6792630-7 (Version None)
Quarter: 2010Q2

REPORT INFORMATION
  Report Type: 
  Country: None (occurrence: None)
  Receive Date: 20100624
  Receipt Date: 20081101
  Transmission Date: 20101027
  Serious: No
  Sender: FDA-Public Use
  Company Number: US-PFIZER INC-2008074607

PATIENT
  Sex: Female
  Weight: 45.454 kg

DRUGS (3)
  1. XALATAN [Suspect]
     Indication: GLAUCOMA
  2. ADVAIR DISKUS 100/50 [Concomitant]
     Route: 055
  3. DILTIAZEM [Concomitant]

REACTIONS (1)
  - EYE IRRITATION [None]
